FAERS Safety Report 20674519 (Version 5)
Quarter: 2022Q2

REPORT INFORMATION
  Report Type: Spontaneous
  Country: US (occurrence: US)
  Receive Date: 20220405
  Receipt Date: 20220601
  Transmission Date: 20220721
  Serious: Yes (Other)
  Sender: FDA-Public Use
  Company Number: US-GLAXOSMITHKLINE-US2022AMR058722

PATIENT

DRUGS (1)
  1. FLOVENT HFA [Suspect]
     Active Substance: FLUTICASONE PROPIONATE
     Indication: Product used for unknown indication
     Dosage: 2 PUFF(S), QD

REACTIONS (6)
  - Near death experience [Unknown]
  - Loss of consciousness [Unknown]
  - Asphyxia [Unknown]
  - Dyspnoea [Unknown]
  - Feeling abnormal [Unknown]
  - Product label confusion [Unknown]
